FAERS Safety Report 6493197-3 (Version None)
Quarter: 2009Q4

REPORT INFORMATION
  Report Type: 
  Country: None (occurrence: None)
  Receive Date: 20091214
  Receipt Date: 20091207
  Transmission Date: 20100525
  Serious: Yes (Other)
  Sender: FDA-Public Use
  Company Number: US-BAYER-200942183NA

PATIENT
  Age: 33 Year
  Sex: Female

DRUGS (1)
  1. YAZ [Suspect]
     Indication: DRUG USE FOR UNKNOWN INDICATION
     Dates: start: 20060801, end: 20090301

REACTIONS (1)
  - CHOLECYSTECTOMY [None]
